FAERS Safety Report 13556053 (Version 1)
Quarter: 2017Q2

REPORT INFORMATION
  Report Type: Spontaneous
  Country: US (occurrence: US)
  Receive Date: 20170517
  Receipt Date: 20170517
  Transmission Date: 20170830
  Serious: Yes (Hospitalization)
  Sender: FDA-Public Use
  Company Number: US-SA-2016SA199617

PATIENT
  Age: 43 Year
  Sex: Female

DRUGS (5)
  1. NOVOLIN N [Concomitant]
     Active Substance: INSULIN HUMAN
     Dosage: DOSE:40 UNIT(S)
  2. TOUJEO [Suspect]
     Active Substance: INSULIN GLARGINE
     Indication: TYPE 2 DIABETES MELLITUS
     Dosage: DOSE;2 UNITS IN MORNING AND 3 UNITS IN LUNCH..
     Route: 065
  3. SOLOSTAR [Concomitant]
     Active Substance: DEVICE
  4. TOUJEO [Suspect]
     Active Substance: INSULIN GLARGINE
     Indication: TYPE 2 DIABETES MELLITUS
     Dosage: DOSE: 7-12 U SLINDING SCALE
     Route: 065
     Dates: start: 20161026
  5. NOVOLIN R [Concomitant]
     Active Substance: INSULIN HUMAN
     Dosage: SLIDING SCALE BEFORE MEALS

REACTIONS (2)
  - Product use issue [Unknown]
  - Hyperglycaemia [Unknown]
